FAERS Safety Report 8437072-3 (Version None)
Quarter: 2012Q2

REPORT INFORMATION
  Report Type: 
  Country: None (occurrence: None)
  Receive Date: 20120614
  Receipt Date: 20120229
  Transmission Date: 20120825
  Serious: No
  Sender: FDA-Public Use
  Company Number: US-AMGEN-USASP2012013725

PATIENT
  Age: 83 Year
  Sex: Female

DRUGS (25)
  1. METFORMIN HCL [Concomitant]
     Dosage: UNK
  2. XANAX [Concomitant]
     Dosage: UNK
  3. HYDROCODONE [Concomitant]
     Dosage: UNK
  4. ZYRTEC [Concomitant]
     Dosage: UNK
  5. CITRACAL [Concomitant]
     Dosage: UNK
  6. METROGEL [Concomitant]
     Dosage: UNK
  7. LUCENTIS [Concomitant]
     Dosage: UNK
  8. SINGULAIR [Concomitant]
     Dosage: UNK
  9. PREMARIN [Concomitant]
     Dosage: UNK
  10. KLOR-CON [Concomitant]
     Dosage: UNK
  11. CENTRUM [Concomitant]
     Dosage: UNK
  12. DEXILANT [Concomitant]
     Dosage: UNK
  13. CHLORHEXIDINE GLUCONATE [Concomitant]
     Dosage: UNK
  14. PANCREASE [Concomitant]
     Dosage: UNK
  15. DIOVAN [Concomitant]
     Dosage: UNK
  16. CRANBERRY [Concomitant]
     Dosage: UNK
  17. LOVAZA [Concomitant]
     Dosage: UNK
  18. TOPROL-XL [Concomitant]
     Dosage: UNK
  19. NEPTAZANE [Concomitant]
     Dosage: UNK
  20. VITAMIN E [Concomitant]
     Dosage: UNK
  21. COENZYME Q10 [Concomitant]
     Dosage: UNK
  22. PROLIA [Suspect]
     Indication: OSTEOPOROSIS POSTMENOPAUSAL
     Dosage: 60 MG, Q6MO
     Dates: start: 20110812
  23. FUROSEMIDE [Concomitant]
     Dosage: UNK
  24. VIGAMOX [Concomitant]
     Dosage: UNK
  25. FLORA [Concomitant]
     Dosage: UNK

REACTIONS (1)
  - ENDODONTIC PROCEDURE [None]
